FAERS Safety Report 23693785 (Version 2)
Quarter: 2024Q2

REPORT INFORMATION
  Report Type: Spontaneous
  Country: PT (occurrence: PT)
  Receive Date: 20240401
  Receipt Date: 20240516
  Transmission Date: 20240716
  Serious: Yes (Other)
  Sender: FDA-Public Use
  Company Number: PT-BAXTER-2024BAX015035

PATIENT
  Age: 61 Year
  Sex: Female

DRUGS (20)
  1. CYCLOPHOSPHAMIDE [Suspect]
     Active Substance: CYCLOPHOSPHAMIDE
     Indication: Invasive breast carcinoma
     Dosage: UNK (3 CYCLES)
     Route: 065
     Dates: start: 201305, end: 201309
  2. DOXORUBICIN [Suspect]
     Active Substance: DOXORUBICIN
     Indication: Invasive breast carcinoma
     Dosage: UNK (3 CYCLES)
     Route: 065
     Dates: start: 201305, end: 201309
  3. GOSERELIN [Suspect]
     Active Substance: GOSERELIN
     Indication: Breast cancer metastatic
     Dosage: UNK (1ST LINE OF PALLIATIVE TREATMENT)
     Route: 065
     Dates: start: 202011, end: 202110
  4. LETROZOLE [Suspect]
     Active Substance: LETROZOLE
     Indication: Breast cancer metastatic
     Dosage: UNK (1ST LINE OF PALLIATIVE TREATMENT)
     Route: 065
     Dates: start: 202011, end: 202204
  5. PACLITAXEL [Suspect]
     Active Substance: PACLITAXEL
     Indication: Invasive breast carcinoma
     Dosage: UNK (6 CYCLES)
     Route: 065
     Dates: start: 201305, end: 201309
  6. RIBOCICLIB [Suspect]
     Active Substance: RIBOCICLIB
     Indication: Breast cancer metastatic
     Dosage: UNK (FIRST LINE OF PALLIATIVE TREATMENT. DOSE REDUCTION TO 200MG; SUSPENDED ON APRIL 2022 DUE TO DIS
     Route: 065
     Dates: start: 202011, end: 202204
  7. RIBOCICLIB [Suspect]
     Active Substance: RIBOCICLIB
     Dosage: UNK (FIRST LINE OF PALLIATIVE TREATMENT. DOSE REDUCTION TO 200MG; SUSPENDED ON APRIL 2022 DUE TO DIS
     Route: 065
     Dates: start: 202011, end: 202204
  8. TALZENNA [Suspect]
     Active Substance: TALAZOPARIB TOSYLATE
     Dosage: 0.5 MG (1X/DAY, THIRD REGIMEN)
     Route: 065
     Dates: start: 202209
  9. TALZENNA [Suspect]
     Active Substance: TALAZOPARIB TOSYLATE
     Dosage: 0.75 MG (1X/DAY A SECOND REGIMEN)
     Route: 065
     Dates: start: 202208, end: 202209
  10. TALZENNA [Suspect]
     Active Substance: TALAZOPARIB TOSYLATE
     Indication: Breast cancer metastatic
     Dosage: 1 MG (1X/DAY FIRST REGIMEN)
     Route: 065
     Dates: start: 202206, end: 202208
  11. TAMOXIFEN [Suspect]
     Active Substance: TAMOXIFEN
     Indication: Invasive breast carcinoma
     Dosage: UNK (ADJUVANT HARMONE THERAPY, SUSPENDED AT THE WILL OF THE PATIENT AFTER 5 YEARS OF TREATMENT)
     Route: 065
     Dates: start: 2013, end: 2018
  12. ABACAVIR SULFATE\LAMIVUDINE [Concomitant]
     Active Substance: ABACAVIR SULFATE\LAMIVUDINE
     Indication: Product used for unknown indication
     Dosage: UNK
     Route: 065
  13. ABACAVIR SULFATE\LAMIVUDINE [Concomitant]
     Active Substance: ABACAVIR SULFATE\LAMIVUDINE
     Dosage: UNK
     Route: 065
  14. BUPRENORPHINE [Concomitant]
     Active Substance: BUPRENORPHINE
     Indication: Product used for unknown indication
     Dosage: UNK
     Route: 065
  15. FENTANYL [Concomitant]
     Active Substance: FENTANYL\FENTANYL CITRATE
     Indication: Product used for unknown indication
     Dosage: UNK
     Route: 065
  16. PRAVASTATIN [Concomitant]
     Active Substance: PRAVASTATIN
     Indication: Product used for unknown indication
     Dosage: UNK
     Route: 065
  17. PRAVASTATIN [Concomitant]
     Active Substance: PRAVASTATIN
     Dosage: UNK
     Route: 065
  18. PREGABALIN [Concomitant]
     Active Substance: PREGABALIN
     Indication: Product used for unknown indication
     Dosage: UNK
     Route: 065
  19. RALTEGRAVIR [Concomitant]
     Active Substance: RALTEGRAVIR
     Indication: Product used for unknown indication
     Dosage: UNK
     Route: 065
  20. RALTEGRAVIR [Concomitant]
     Active Substance: RALTEGRAVIR
     Dosage: UNK
     Route: 065

REACTIONS (7)
  - Metastases to liver [Unknown]
  - Metastases to bone [Unknown]
  - Neutropenia [Recovered/Resolved]
  - Febrile neutropenia [Recovered/Resolved]
  - Haematotoxicity [Unknown]
  - Metastases to lung [Unknown]
  - Neoplasm progression [Unknown]
